FAERS Safety Report 11952420 (Version 1)
Quarter: 2016Q1

REPORT INFORMATION
  Report Type: Spontaneous
  Country: US (occurrence: US)
  Receive Date: 20160126
  Receipt Date: 20160126
  Transmission Date: 20160526
  Serious: Yes (Hospitalization, Other)
  Sender: FDA-Public Use
  Company Number: US-PROCTER_AND_GAMBLE-GS16006680

PATIENT
  Age: 14 Year
  Sex: Female

DRUGS (2)
  1. FLUOXETINE [Concomitant]
     Active Substance: FLUOXETINE HYDROCHLORIDE
  2. DIPHENHYDRAMINE HCL [Suspect]
     Active Substance: DIPHENHYDRAMINE HYDROCHLORIDE
     Indication: SUICIDE ATTEMPT
     Dosage: ONE BOTTLE
     Route: 048

REACTIONS (32)
  - Protrusion tongue [Unknown]
  - Tachycardia [Recovering/Resolving]
  - Mood altered [Unknown]
  - Vasodilatation [Unknown]
  - Delirium [Recovering/Resolving]
  - Lack of spontaneous speech [Recovering/Resolving]
  - Anticholinergic syndrome [Recovering/Resolving]
  - Gastrointestinal sounds abnormal [Recovering/Resolving]
  - Blood glucose increased [Unknown]
  - Suicide attempt [Unknown]
  - Tremor [Unknown]
  - Electrocardiogram QRS complex shortened [Unknown]
  - Agitation [Unknown]
  - Anhidrosis [Unknown]
  - Incoherent [Recovering/Resolving]
  - Hyporeflexia [Unknown]
  - Mental status changes [Recovering/Resolving]
  - Musculoskeletal stiffness [Unknown]
  - Dyskinesia [Unknown]
  - Blood bicarbonate abnormal [Unknown]
  - Hypotonia [Unknown]
  - Mydriasis [Recovering/Resolving]
  - Urinary incontinence [Unknown]
  - White blood cell count increased [Unknown]
  - Electrocardiogram QT prolonged [Unknown]
  - Physical examination abnormal [Recovering/Resolving]
  - Pupillary reflex impaired [Unknown]
  - Unresponsive to stimuli [Recovered/Resolved]
  - Blood chloride decreased [Unknown]
  - Sinus tachycardia [Recovering/Resolving]
  - Coma scale abnormal [Recovering/Resolving]
  - Eye movement disorder [Unknown]
